FAERS Safety Report 11057216 (Version 1)
Quarter: 2015Q2

REPORT INFORMATION
  Report Type: Spontaneous
  Country: FR (occurrence: FR)
  Receive Date: 20150422
  Receipt Date: 20150422
  Transmission Date: 20150821
  Serious: Yes (Other)
  Sender: FDA-Public Use
  Company Number: FR-ASTRAZENECA-2015SE36443

PATIENT
  Age: 44 Year
  Sex: Female

DRUGS (5)
  1. XEROQUEL [Suspect]
     Active Substance: QUETIAPINE FUMARATE
     Indication: DEPRESSION
     Route: 048
  2. MIRTAZAPINE. [Concomitant]
     Active Substance: MIRTAZAPINE
  3. VENLAFAXINE [Concomitant]
     Active Substance: VENLAFAXINE HYDROCHLORIDE
  4. LAROXYL [Concomitant]
     Active Substance: AMITRIPTYLINE
  5. SERESTA [Concomitant]
     Active Substance: OXAZEPAM

REACTIONS (2)
  - Dysphagia [Unknown]
  - Cerebrovascular accident [Recovering/Resolving]
